FAERS Safety Report 5236710-6 (Version None)
Quarter: 2007Q1

REPORT INFORMATION
  Report Type: 
  Country: None (occurrence: None)
  Receive Date: 20070209
  Receipt Date: 20070126
  Transmission Date: 20070707
  Serious: Yes (Death)
  Sender: FDA-Public Use
  Company Number: 070118-0000074

PATIENT
  Age: 10 Day
  Sex: Male

DRUGS (10)
  1. INDOMETHACIN [Suspect]
     Indication: PATENT DUCTUS ARTERIOSUS
     Dosage: 0.2 MG/KG; 1X; IV
     Route: 042
     Dates: start: 19981120, end: 19981120
  2. AMIKACIN SULFATE [Concomitant]
  3. AMPICILLIN [Concomitant]
  4. PLASMA [Concomitant]
  5. CALCIUM GLUCONATE [Concomitant]
  6. CARTEOLOL HCL [Concomitant]
  7. CEFTAZIDIME [Concomitant]
  8. DOPAMINE HCL [Concomitant]
  9. FENTANYL CITRATE [Concomitant]
  10. VANCOMYCIN HYDROCHLORIDE [Concomitant]

REACTIONS (2)
  - ILEAL PERFORATION [None]
  - PERITONITIS [None]
